FAERS Safety Report 6832182-6 (Version None)
Quarter: 2010Q3

REPORT INFORMATION
  Report Type: 
  Country: None (occurrence: None)
  Receive Date: 20100712
  Receipt Date: 20100630
  Transmission Date: 20110219
  Serious: Yes (Other)
  Sender: FDA-Public Use
  Company Number: PHHY2010JP39778

PATIENT
  Age: 14 Year
  Sex: Female

DRUGS (3)
  1. CICLOSPORIN [Suspect]
     Indication: FOCAL SEGMENTAL GLOMERULOSCLEROSIS
     Dosage: 140 MG DAILY
  2. CICLOSPORIN [Suspect]
     Indication: NEPHROTIC SYNDROME
  3. PREDNISOLONE [Concomitant]
     Indication: FOCAL SEGMENTAL GLOMERULOSCLEROSIS
     Dosage: 60 MG

REACTIONS (5)
  - GRAND MAL CONVULSION [None]
  - HAEMODIALYSIS [None]
  - OEDEMA [None]
  - PURULENT DISCHARGE [None]
  - TOXIC ENCEPHALOPATHY [None]
